FAERS Safety Report 18096247 (Version 4)
Quarter: 2024Q2

REPORT INFORMATION
  Report Type: Other
  Country: US (occurrence: None)
  Receive Date: 20200730
  Receipt Date: 20240530
  Transmission Date: 20240715
  Serious: Yes (Hospitalization, Other)
  Sender: FDA-Public Use
  Company Number: US-ROCHE-2649124

PATIENT
  Age: 64 Year
  Sex: Female

DRUGS (6)
  1. OCREVUS [Suspect]
     Active Substance: OCRELIZUMAB
     Indication: Secondary progressive multiple sclerosis
     Dosage: NO?DATE OF TREATMENT: 15/APR/2019, 19/NOV/2019.
     Route: 065
     Dates: start: 20181015
  2. OCREVUS [Suspect]
     Active Substance: OCRELIZUMAB
     Indication: Relapsing multiple sclerosis
     Route: 042
     Dates: start: 20190415
  3. OCREVUS [Suspect]
     Active Substance: OCRELIZUMAB
     Indication: Secondary progressive multiple sclerosis
     Dosage: TWICE A YEAR, INJECTION;ONGOING YES
     Route: 065
  4. OCREVUS [Suspect]
     Active Substance: OCRELIZUMAB
     Dosage: INFUSE 600 MG EVERY 6 MONTHS
     Route: 065
  5. TIZANIDINE [Concomitant]
     Active Substance: TIZANIDINE
     Indication: Muscle relaxant therapy
     Dosage: 1-2 TABLETS 4 TIMES A DAY; ONGOING YES
     Route: 048
  6. OXYCODONE [Concomitant]
     Active Substance: OXYCODONE\OXYCODONE HYDROCHLORIDE
     Indication: Pain
     Dosage: AS NEEDED, 6 HOURS APART; ONGOING YES
     Route: 048

REACTIONS (5)
  - Nephrolithiasis [Recovered/Resolved]
  - Haematological infection [Recovered/Resolved]
  - Shoulder fracture [Recovered/Resolved]
  - Decubitus ulcer [Not Recovered/Not Resolved]
  - Pyrexia [Recovered/Resolved]

NARRATIVE: CASE EVENT DATE: 20200501
